FAERS Safety Report 18345779 (Version 1)
Quarter: 2020Q4

REPORT INFORMATION
  Report Type: Spontaneous
  Country: GB (occurrence: GB)
  Receive Date: 20201005
  Receipt Date: 20201005
  Transmission Date: 20210114
  Serious: Yes (Hospitalization)
  Sender: FDA-Public Use
  Company Number: GB-MYLANLABS-2020M1083863

PATIENT
  Age: 36 Year
  Sex: Male

DRUGS (1)
  1. CLOZARIL [Suspect]
     Active Substance: CLOZAPINE
     Indication: SCHIZOPHRENIA
     Dosage: TAKES 200 MORNING AND 325 EVENING DOSE
     Route: 048
     Dates: start: 20181009, end: 20200929

REACTIONS (4)
  - Constipation [Unknown]
  - Colitis [Unknown]
  - Product dose omission issue [Unknown]
  - Abdominal pain [Unknown]
